FAERS Safety Report 24297657 (Version 2)
Quarter: 2024Q4

REPORT INFORMATION
  Report Type: Spontaneous
  Country: US (occurrence: US)
  Receive Date: 20240909
  Receipt Date: 20241008
  Transmission Date: 20250115
  Serious: Yes (Hospitalization, Other)
  Sender: SANOFI AVENTIS
  Company Number: US-SA-2024SA258621

PATIENT
  Age: 46 Year
  Sex: Male
  Weight: 48.53 kg

DRUGS (1)
  1. CAPRELSA [Suspect]
     Active Substance: VANDETANIB
     Indication: Thyroid cancer
     Dosage: 100 MG, QD
     Route: 048
     Dates: start: 20221115, end: 2024

REACTIONS (2)
  - Pancreatitis [Unknown]
  - Disease progression [Unknown]

NARRATIVE: CASE EVENT DATE: 20240101
